FAERS Safety Report 4927991-4 (Version None)
Quarter: 2006Q1

REPORT INFORMATION
  Report Type: 
  Country: None (occurrence: None)
  Receive Date: 20060131
  Receipt Date: 20051103
  Transmission Date: 20060701
  Serious: Yes (Hospitalization)
  Sender: FDA-Public Use
  Company Number: 200519060US

PATIENT
  Age: 31 Year
  Sex: Female

DRUGS (5)
  1. KETEK [Suspect]
     Indication: SINUSITIS
     Dosage: 800 MG PO
     Route: 048
     Dates: start: 20051026, end: 20051027
  2. CORTISONE SOLUTION FOR INJECTION [Suspect]
  3. MOTRIN [Concomitant]
  4. PROMETHAZINE HCL [Concomitant]
  5. COUGH SYRUP NOS [Concomitant]

REACTIONS (9)
  - CHEST PAIN [None]
  - DIZZINESS [None]
  - ERYTHEMA [None]
  - HEART RATE INCREASED [None]
  - HYPERSENSITIVITY [None]
  - LOSS OF CONSCIOUSNESS [None]
  - SKIN WARM [None]
  - SWELLING FACE [None]
  - VISION BLURRED [None]
